FAERS Safety Report 8695218 (Version 2)
Quarter: 2013Q4

REPORT INFORMATION
  Report Type: Spontaneous
  Country: US (occurrence: US)
  Receive Date: 20120731
  Receipt Date: 20131101
  Transmission Date: 20140711
  Serious: No
  Sender: FDA-Public Use
  Company Number: US-009507513-1205USA01740

PATIENT
  Age: 65 Year
  Sex: Male

DRUGS (3)
  1. ZETIA [Suspect]
     Indication: BLOOD CHOLESTEROL INCREASED
     Dosage: UNK
     Route: 048
     Dates: start: 20120417, end: 20120506
  2. ALEVE [Concomitant]
  3. CELEBREX [Concomitant]

REACTIONS (1)
  - Rash [Recovering/Resolving]
